FAERS Safety Report 15015913 (Version 1)
Quarter: 2018Q2

REPORT INFORMATION
  Report Type: Spontaneous
  Country: US (occurrence: US)
  Receive Date: 20180615
  Receipt Date: 20180615
  Transmission Date: 20180711
  Serious: No
  Sender: FDA-Public Use
  Company Number: US-SA-2018SA157298

PATIENT

DRUGS (1)
  1. PRALUENT [Suspect]
     Active Substance: ALIROCUMAB
     Route: 058

REACTIONS (6)
  - Hypersensitivity [Unknown]
  - Erythema [Unknown]
  - Pruritus generalised [Not Recovered/Not Resolved]
  - Rash [Recovering/Resolving]
  - Swelling face [Unknown]
  - Blister [Unknown]
